FAERS Safety Report 20171353 (Version 1)
Quarter: 2021Q4

REPORT INFORMATION
  Report Type: Report from Study
  Country: US (occurrence: US)
  Receive Date: 20211210
  Receipt Date: 20211210
  Transmission Date: 20220304
  Serious: Yes (Other)
  Sender: FDA-Public Use
  Company Number: US-HLS-202105664

PATIENT
  Age: 29 Year
  Sex: Male

DRUGS (5)
  1. CLOZAPINE [Suspect]
     Active Substance: CLOZAPINE
     Indication: Product used for unknown indication
     Dosage: AT BEDTIME , THEN DECREASED DOSE AT 12.5MG AT BEDTIME.
     Route: 065
     Dates: start: 20210813, end: 20211112
  2. LITHIUM [Concomitant]
     Active Substance: LITHIUM
     Indication: Bipolar disorder
     Dosage: TWICE DAILY
     Route: 065
  3. INVEGA [Concomitant]
     Active Substance: PALIPERIDONE
     Indication: Schizoaffective disorder
     Dosage: TWICE DAILY
     Route: 065
  4. PROPRANOLOL HYDROCHLORIDE [Concomitant]
     Active Substance: PROPRANOLOL HYDROCHLORIDE
     Indication: Restlessness
     Dosage: 1-2 TIMES OF THE DAY
     Route: 065
  5. COGENTIN [Concomitant]
     Active Substance: BENZTROPINE MESYLATE
     Indication: Restlessness
     Dosage: 2 TIMES A DAY
     Route: 065

REACTIONS (2)
  - Sedation [Unknown]
  - Loss of personal independence in daily activities [Unknown]
